FAERS Safety Report 10463077 (Version 3)
Quarter: 2014Q4

REPORT INFORMATION
  Report Type: Spontaneous
  Country: US (occurrence: US)
  Receive Date: 20140919
  Receipt Date: 20141002
  Transmission Date: 20150528
  Serious: Yes (Hospitalization, Other)
  Sender: FDA-Public Use
  Company Number: US-UNITED THERAPEUTICS-UNT-2014-006983

PATIENT
  Age: 56 Year
  Sex: Female
  Weight: 40.82 kg

DRUGS (4)
  1. REMODULIN [Suspect]
     Active Substance: TREPROSTINIL
     Indication: COR PULMONALE CHRONIC
     Dosage: 0.1122 ?G/KG, CONTINUING
     Route: 041
     Dates: start: 20040202
  2. REVATIO [Concomitant]
     Active Substance: SILDENAFIL CITRATE
     Indication: PRODUCT USED FOR UNKNOWN INDICATION
  3. REMODULIN [Suspect]
     Active Substance: TREPROSTINIL
     Dosage: 0.1122 ?G/KG, CONTINUING
     Route: 041
     Dates: start: 20070510
  4. REMODULIN [Suspect]
     Active Substance: TREPROSTINIL
     Dosage: 0.1122 ?G/KG, CONTINUING
     Route: 041
     Dates: start: 20040203

REACTIONS (9)
  - Device related infection [Unknown]
  - Weight decreased [Unknown]
  - Dyspnoea [Unknown]
  - Malaise [Unknown]
  - Pulmonary arterial hypertension [Unknown]
  - Abdominal discomfort [Unknown]
  - Diarrhoea [Unknown]
  - Asthenia [Unknown]
  - Hypotension [Unknown]

NARRATIVE: CASE EVENT DATE: 201408
